FAERS Safety Report 7935747 (Version 2)
Quarter: 2014Q2

REPORT INFORMATION
  Report Type: Report from Study
  Country: US (occurrence: US)
  Receive Date: 20110509
  Receipt Date: 20140514
  Transmission Date: 20141212
  Serious: Yes (Death, Hospitalization, Other)
  Sender: FDA-Public Use
  Company Number: US-ALEXION-A201000579

PATIENT
  Sex: 0

DRUGS (10)
  1. SOLIRIS [Suspect]
     Indication: PAROXYSMAL NOCTURNAL HAEMOGLOBINURIA
     Dosage: 600 MG, QWK
     Route: 042
     Dates: start: 20090225
  2. SOLIRIS [Suspect]
     Dosage: 900 MG, Q2W
     Route: 042
     Dates: start: 20090325, end: 20090429
  3. AMBIEN [Concomitant]
     Dosage: 5 MG, UNK
     Route: 048
  4. CELEXA                             /00582602/ [Concomitant]
     Dosage: 20 MG, UNK
     Route: 048
  5. COUMADIN                           /00014802/ [Concomitant]
     Dosage: 1 MG, UNK
     Route: 048
  6. FLONASE [Concomitant]
     Dosage: 50 UG, UNK
  7. PEPCID                             /00706001/ [Concomitant]
     Dosage: 20 MG, UNK
     Route: 048
  8. PROCRIT                            /00909301/ [Concomitant]
  9. DANAZOL [Concomitant]
  10. PREDNISONE [Concomitant]

REACTIONS (16)
  - Paroxysmal nocturnal haemoglobinuria [Fatal]
  - Disease progression [Fatal]
  - Pancytopenia [Unknown]
  - Aplastic anaemia [Unknown]
  - Haemorrhage [Unknown]
  - Haemoptysis [Unknown]
  - Platelet count decreased [Unknown]
  - Blood lactate dehydrogenase decreased [Unknown]
  - Platelet transfusion [Unknown]
  - Transfusion [Unknown]
  - Asthenia [Unknown]
  - Anaemia [Unknown]
  - Dysphagia [Unknown]
  - Haemoglobinuria [Unknown]
  - Fatigue [Unknown]
  - Abdominal pain [Unknown]
